FAERS Safety Report 6120427-X (Version None)
Quarter: 2009Q1

REPORT INFORMATION
  Report Type: 
  Country: None (occurrence: None)
  Receive Date: 20090317
  Receipt Date: 20090311
  Transmission Date: 20090719
  Serious: Yes (Death, Other)
  Sender: FDA-Public Use
  Company Number: PHHY2009GB08237

PATIENT
  Sex: Female

DRUGS (2)
  1. GLEEVEC [Suspect]
     Indication: GASTROINTESTINAL STROMAL TUMOUR
     Dosage: 400 MG / DAY
  2. GLEEVEC [Suspect]
     Dosage: 800 MG / DAY

REACTIONS (4)
  - DEATH [None]
  - GASTROINTESTINAL STROMAL TUMOUR [None]
  - INTESTINAL OBSTRUCTION [None]
  - THERAPY RESPONDER [None]
